FAERS Safety Report 16951097 (Version 1)
Quarter: 2019Q4

REPORT INFORMATION
  Report Type: Spontaneous
  Country: US (occurrence: US)
  Receive Date: 20191022
  Receipt Date: 20191022
  Transmission Date: 20200122
  Serious: Yes (Other)
  Sender: FDA-Public Use
  Company Number: None

PATIENT
  Age: 67 Year
  Sex: Male
  Weight: 68 kg

DRUGS (5)
  1. SODIUM CHLORIDE FLUSH 0.9% [Concomitant]
     Dates: start: 20190729, end: 20190729
  2. ACETAMINOPHEN 325 MG TABLET UD TABLET [Concomitant]
     Dates: start: 20190729, end: 20190729
  3. GAMMAGARD [Suspect]
     Active Substance: HUMAN IMMUNOGLOBULIN G
     Indication: IMMUNODEFICIENCY COMMON VARIABLE
     Dosage: ?          OTHER FREQUENCY:EVERY 4 WEEKS;?
     Route: 041
     Dates: start: 20190729, end: 20191016
  4. DIPHENHYDRAMINE HCL ORAL CAP 25 MG CAPSULE [Concomitant]
     Dates: start: 20190729, end: 20190729
  5. SODIUM CHLORIDE 0.9%- 500 ML [Concomitant]
     Dates: start: 20190729, end: 20190729

REACTIONS (1)
  - Peripheral swelling [None]

NARRATIVE: CASE EVENT DATE: 20190729
